FAERS Safety Report 4745897-0 (Version None)
Quarter: 2005Q3

REPORT INFORMATION
  Report Type: 
  Country: None (occurrence: None)
  Receive Date: 20050816
  Receipt Date: 20050801
  Transmission Date: 20060218
  Serious: Yes (Death, Hospitalization)
  Sender: FDA-Public Use
  Company Number: DEWYE870601AUG05

PATIENT
  Sex: Female
  Weight: 50 kg

DRUGS (10)
  1. ENBREL [Suspect]
     Indication: PYODERMA GANGRENOSUM
     Route: 058
     Dates: start: 20050519, end: 20050526
  2. SANDIMMUNE [Concomitant]
     Dosage: 250 MG
     Route: 065
     Dates: start: 20050401
  3. MARCUMAR [Concomitant]
     Dosage: DEPENDING ON INR
     Route: 065
     Dates: start: 20040101
  4. RISPERDAL [Concomitant]
     Dosage: 3 MG
     Route: 065
     Dates: start: 20050401
  5. ALDACTONE [Concomitant]
     Dosage: 25 MG
     Route: 048
     Dates: start: 20050301
  6. DIGITOXIN TAB [Concomitant]
     Dosage: 0.07 MG
     Route: 048
     Dates: start: 20050301
  7. DECORTIN-H [Concomitant]
     Dosage: 80 MG
     Dates: start: 20050401
  8. NEXIUM [Concomitant]
     Dosage: 20 MG
     Dates: start: 20050301
  9. HALDOL [Concomitant]
  10. DIAZEPAM [Concomitant]

REACTIONS (3)
  - INFECTION [None]
  - PNEUMONIA [None]
  - SEPSIS [None]
